FAERS Safety Report 20404190 (Version 1)
Quarter: 2022Q1

REPORT INFORMATION
  Report Type: Spontaneous
  Country: IT (occurrence: IT)
  Receive Date: 20220131
  Receipt Date: 20220131
  Transmission Date: 20220423
  Serious: Yes (Other)
  Sender: FDA-Public Use
  Company Number: IT-CELLTRION INC.-2022IT000701

PATIENT

DRUGS (3)
  1. INFLIXIMAB [Suspect]
     Active Substance: INFLIXIMAB
     Indication: Psoriatic arthropathy
     Dosage: UNK
  2. SULFASALAZINE [Concomitant]
     Active Substance: SULFASALAZINE
     Dosage: 3 G, DAILY
  3. METHOTREXATE [Concomitant]
     Active Substance: METHOTREXATE
     Dosage: 5-10 MG/DAY

REACTIONS (1)
  - Kaposi^s sarcoma [Unknown]
